FAERS Safety Report 24295783 (Version 4)
Quarter: 2024Q4

REPORT INFORMATION
  Report Type: Report from Study
  Country: US (occurrence: US)
  Receive Date: 20240908
  Receipt Date: 20241107
  Transmission Date: 20250114
  Serious: Yes (Hospitalization, Other)
  Sender: ABBVIE
  Company Number: US-ABBVIE-5874333

PATIENT
  Age: 67 Year
  Sex: Female
  Weight: 73 kg

DRUGS (14)
  1. HUMIRA [Suspect]
     Active Substance: ADALIMUMAB
     Indication: Psoriatic arthropathy
     Dosage: DOSAGE: 40 MG/ML STRENGTH: 40 MG/.04 ML
     Route: 058
     Dates: start: 202405, end: 20240515
  2. HUMIRA [Suspect]
     Active Substance: ADALIMUMAB
     Indication: Psoriasis
     Dosage: DOSAGE: 40 MG/ML STRENGTH: 40 MG/.04 ML
     Route: 058
     Dates: start: 20240807
  3. HUMIRA [Suspect]
     Active Substance: ADALIMUMAB
     Dosage: DOSAGE: 40 MG/ML STRENGTH: 40 MG/.04 ML, CITRATE-FREE
     Route: 058
  4. MONTELUKAST [Concomitant]
     Active Substance: MONTELUKAST
     Indication: Cough
     Route: 048
  5. TRIAMCINOLONE ACETONIDE [Concomitant]
     Active Substance: TRIAMCINOLONE ACETONIDE
     Indication: Psoriasis
     Dosage: 0.025% CREAM FOR PSORIASIS AND NOW ALSO MIXED WITH FOR BUTT CRACK
  6. KETOCONAZOLE [Concomitant]
     Active Substance: KETOCONAZOLE
     Indication: Skin fissures
     Dosage: CREAM, 2%, TO BE MIXED WITH TRIAMCINOLONE ACETONIDE CREAM AND PUT ON BUTT CRACK
  7. FLONASE [Concomitant]
     Active Substance: FLUTICASONE PROPIONATE
     Indication: Product used for unknown indication
     Dosage: 50 MCG PER SPRAY, PER NOSTRIL
  8. CALCIUM CITRATE + D3 [Concomitant]
     Indication: Product used for unknown indication
     Dosage: 2X PER DAY
  9. EXCEDRIN MIGRAINE [Concomitant]
     Active Substance: ACETAMINOPHEN\ASPIRIN\CAFFEINE
     Indication: Migraine
     Dosage: AS NEEDED
  10. B12 [Concomitant]
     Indication: Product used for unknown indication
     Dosage: 3000 MCG
     Dates: start: 20240311
  11. LEVOTHYROXINE [Concomitant]
     Active Substance: LEVOTHYROXINE
     Indication: Product used for unknown indication
     Dosage: DOSAGE: 150 MCG 1 TABLET IN THE MORNING, BEFORE BREAKFAST
     Route: 048
  12. PANTOPRAZOLE [Concomitant]
     Active Substance: PANTOPRAZOLE
     Indication: Cough
     Route: 048
  13. FLUTICASONE PROPIONATE\SALMETEROL XINAFOATE [Concomitant]
     Active Substance: FLUTICASONE PROPIONATE\SALMETEROL XINAFOATE
     Indication: Cough
     Dosage: 250/50MCG, INHALE 2 PUFFS BY MOUTH DAILY
  14. AMOXICILLIN\CLAVULANATE POTASSIUM [Concomitant]
     Active Substance: AMOXICILLIN\CLAVULANATE POTASSIUM
     Indication: Product used for unknown indication
     Dosage: 875/125MG 1-1-1 FOR 3 MORE DAYS
     Route: 048

REACTIONS (10)
  - Cyst [Recovering/Resolving]
  - Pain [Unknown]
  - Back pain [Unknown]
  - Abscess limb [Recovering/Resolving]
  - Cyst [Recovered/Resolved]
  - Wound secretion [Recovering/Resolving]
  - Musculoskeletal pain [Unknown]
  - Swelling [Unknown]
  - Wound infection staphylococcal [Unknown]
  - Staphylococcal infection [Unknown]

NARRATIVE: CASE EVENT DATE: 20240101
